FAERS Safety Report 4721552-8 (Version None)
Quarter: 2005Q3

REPORT INFORMATION
  Report Type: 
  Country: None (occurrence: None)
  Receive Date: 20050721
  Receipt Date: 20041122
  Transmission Date: 20060218
  Serious: No
  Sender: FDA-Public Use
  Company Number: US-BRISTOL-MYERS SQUIBB COMPANY-12772240

PATIENT
  Age: 71 Year
  Sex: Female
  Weight: 56 kg

DRUGS (5)
  1. COUMADIN [Suspect]
     Indication: ATRIAL FIBRILLATION
     Dosage: STARTED 2.5MG QD TO CHANGING DOSES;STARTED ON GENERIC, SWITCH TO BRAND ON 11/12/04.
     Route: 048
     Dates: start: 20041010
  2. FOSAMAX [Concomitant]
  3. FOLIC ACID [Concomitant]
  4. CHONDROITIN SULFATE + GLUCOSAMINE [Concomitant]
  5. BETAPACE [Concomitant]

REACTIONS (1)
  - INTERNATIONAL NORMALISED RATIO DECREASED [None]
